FAERS Safety Report 8186334-6 (Version None)
Quarter: 2012Q1

REPORT INFORMATION
  Report Type: 
  Country: None (occurrence: None)
  Receive Date: 20120306
  Receipt Date: 20120229
  Transmission Date: 20120608
  Serious: No
  Sender: FDA-Public Use
  Company Number: US-PFIZER INC-2012055171

PATIENT
  Sex: Female

DRUGS (1)
  1. LEVOXYL [Suspect]
     Dosage: UNK
     Dates: end: 20120101

REACTIONS (3)
  - FEELING ABNORMAL [None]
  - DEPRESSED MOOD [None]
  - MIGRAINE [None]
